FAERS Safety Report 7998110-5 (Version None)
Quarter: 2011Q4

REPORT INFORMATION
  Report Type: 
  Country: None (occurrence: None)
  Receive Date: 20111221
  Receipt Date: 20110203
  Transmission Date: 20120403
  Serious: No
  Sender: FDA-Public Use
  Company Number: US-GLAXOSMITHKLINE-A0911703A

PATIENT
  Sex: Male

DRUGS (5)
  1. METOPROLOL TARTRATE [Concomitant]
     Dosage: 50MG IN THE MORNING
     Route: 048
  2. PRINZIDE [Concomitant]
     Route: 048
  3. AVODART [Concomitant]
     Dosage: .5MG PER DAY
     Route: 048
  4. LOVAZA [Suspect]
     Indication: PRODUCT USED FOR UNKNOWN INDICATION
     Route: 048
     Dates: start: 20100401
  5. FLOMAX [Concomitant]
     Dosage: .4MG TWICE PER DAY
     Route: 048

REACTIONS (4)
  - PRODUCT ODOUR ABNORMAL [None]
  - VOMITING [None]
  - NAUSEA [None]
  - PRODUCT QUALITY ISSUE [None]
